FAERS Safety Report 18018072 (Version 1)
Quarter: 2020Q3

REPORT INFORMATION
  Report Type: Spontaneous
  Country: CA (occurrence: CA)
  Receive Date: 20200713
  Receipt Date: 20200713
  Transmission Date: 20201103
  Serious: Yes (Hospitalization, Disabling, Other)
  Sender: FDA-Public Use
  Company Number: CA-AUROBINDO-AUR-APL-2020-034151

PATIENT
  Sex: Female
  Weight: 3 kg

DRUGS (1)
  1. CITALOPRAM [Suspect]
     Active Substance: CITALOPRAM HYDROBROMIDE
     Indication: PRODUCT USED FOR UNKNOWN INDICATION
     Dosage: ONCE A DAY
     Route: 064

REACTIONS (4)
  - Neonatal respiratory arrest [Unknown]
  - Motor dysfunction [Unknown]
  - Hypotonia [Unknown]
  - Foetal exposure during pregnancy [Unknown]
